FAERS Safety Report 5865096-9 (Version None)
Quarter: 2008Q3

REPORT INFORMATION
  Report Type: 
  Country: None (occurrence: None)
  Receive Date: 20080829
  Receipt Date: 20080821
  Transmission Date: 20090109
  Serious: Yes (Other)
  Sender: FDA-Public Use
  Company Number: A0742942A

PATIENT
  Sex: Male
  Weight: 106.8 kg

DRUGS (5)
  1. AVANDIA [Suspect]
     Dosage: 4MG TWICE PER DAY
     Route: 048
     Dates: start: 19990601, end: 20070901
  2. AVANDAMET [Suspect]
     Dosage: 8MG TWICE PER DAY
     Route: 048
     Dates: start: 20021001, end: 20070101
  3. GLYCEROLTRINITRATE [Concomitant]
     Dates: start: 19981101
  4. ZOCOR [Concomitant]
     Dates: start: 19980901
  5. ZOLOFT [Concomitant]
     Dates: start: 19990101

REACTIONS (4)
  - CARDIAC FAILURE CONGESTIVE [None]
  - CORONARY ARTERY DISEASE [None]
  - CORONARY ARTERY OCCLUSION [None]
  - TRANSIENT ISCHAEMIC ATTACK [None]
